FAERS Safety Report 11540210 (Version 2)
Quarter: 2015Q3

REPORT INFORMATION
  Report Type: Spontaneous
  Country: US (occurrence: US)
  Receive Date: 20150923
  Receipt Date: 20150930
  Transmission Date: 20151125
  Serious: No
  Sender: FDA-Public Use
  Company Number: US-PFIZER INC-2015307780

PATIENT
  Sex: Female

DRUGS (2)
  1. NEURONTIN [Suspect]
     Active Substance: GABAPENTIN
     Indication: PAIN
  2. NEURONTIN [Suspect]
     Active Substance: GABAPENTIN
     Indication: DIABETIC NEUROPATHY
     Dosage: UNK (2 IN THE MORNING AND 2 AT NIGHT IN THE WINTER MONTH)

REACTIONS (4)
  - Pain [Unknown]
  - Tremor [Unknown]
  - Intentional product misuse [Unknown]
  - Depressed mood [Unknown]
